FAERS Safety Report 6201796-9 (Version None)
Quarter: 2009Q2

REPORT INFORMATION
  Report Type: 
  Country: None (occurrence: None)
  Receive Date: 20090520
  Receipt Date: 20090506
  Transmission Date: 20091009
  Serious: Yes (Other)
  Sender: FDA-Public Use
  Company Number: 09-000739

PATIENT
  Age: 70 Year
  Sex: Female
  Weight: 61.2 kg

DRUGS (2)
  1. ESTRACE [Suspect]
     Indication: VULVOVAGINAL DRYNESS
     Dosage: DOSE, 1X A MONTH, VAGINAL; 2 X A MONTH
     Route: 067
     Dates: start: 19990101, end: 20090101
  2. ESTRACE [Suspect]
     Indication: VULVOVAGINAL DRYNESS
     Dosage: DOSE, 1X A MONTH, VAGINAL; 2 X A MONTH
     Route: 067
     Dates: start: 20090301

REACTIONS (4)
  - BLADDER PROLAPSE [None]
  - DRUG ADMINISTRATION ERROR [None]
  - UNDERDOSE [None]
  - UTERINE PROLAPSE [None]
